FAERS Safety Report 6027262-1 (Version None)
Quarter: 2009Q1

REPORT INFORMATION
  Report Type: 
  Country: None (occurrence: None)
  Receive Date: 20090105
  Receipt Date: 20081223
  Transmission Date: 20090719
  Serious: Yes (Other)
  Sender: FDA-Public Use
  Company Number: US-ELI_LILLY_AND_COMPANY-US200812005601

PATIENT
  Sex: Female

DRUGS (6)
  1. BYETTA [Suspect]
  2. CRESTOR [Concomitant]
     Dosage: UNK, WEEKLY (1/W)
  3. NEXIUM [Concomitant]
  4. ALLEGRA [Concomitant]
  5. NORVASC [Concomitant]
  6. METFORMIN [Concomitant]
     Dosage: 1000 MG, 2/D

REACTIONS (3)
  - GASTROINTESTINAL DISORDER [None]
  - PANCREATITIS [None]
  - WEIGHT DECREASED [None]
